FAERS Safety Report 20356624 (Version 1)
Quarter: 2022Q1

REPORT INFORMATION
  Report Type: Spontaneous
  Country: US (occurrence: US)
  Receive Date: 20220120
  Receipt Date: 20220120
  Transmission Date: 20220423
  Serious: No
  Sender: FDA-Public Use
  Company Number: US-ORGANON-O2201USA001165

PATIENT
  Age: 23 Year
  Sex: Female

DRUGS (2)
  1. NEXPLANON [Suspect]
     Active Substance: ETONOGESTREL
     Indication: Contraception
     Dosage: 1 IMPLANT OF 68 MILLIGRAM
     Route: 059
     Dates: start: 20181123
  2. RISPERIDONE [Concomitant]
     Active Substance: RISPERIDONE
     Dosage: UNK

REACTIONS (3)
  - Muscle spasms [Not Recovered/Not Resolved]
  - Abdominal pain upper [Not Recovered/Not Resolved]
  - Incorrect product administration duration [Unknown]

NARRATIVE: CASE EVENT DATE: 20211123
